FAERS Safety Report 15430088 (Version 1)
Quarter: 2018Q3

REPORT INFORMATION
  Report Type: Spontaneous
  Country: US (occurrence: US)
  Receive Date: 20180920
  Receipt Date: 20180920
  Transmission Date: 20181010
  Serious: Yes (Hospitalization)
  Sender: FDA-Public Use
  Company Number: None

PATIENT
  Age: 85 Year
  Sex: Male

DRUGS (2)
  1. AMLODIPINE [Suspect]
     Active Substance: AMLODIPINE BESYLATE
     Indication: HYPERTENSION
     Dates: start: 20180114, end: 20180124
  2. DOXYCYCLINE. [Suspect]
     Active Substance: DOXYCYCLINE
     Indication: ARTHROPOD BITE
     Dates: start: 20180114, end: 20180124

REACTIONS (8)
  - Hypersensitivity vasculitis [None]
  - Rash [None]
  - Purpura [None]
  - Rash pruritic [None]
  - Drug eruption [None]
  - Drug hypersensitivity [None]
  - Rash morbilliform [None]
  - Cellulitis [None]

NARRATIVE: CASE EVENT DATE: 20180124
